FAERS Safety Report 22874675 (Version 3)
Quarter: 2024Q4

REPORT INFORMATION
  Report Type: Other
  Country: CA (occurrence: CA)
  Receive Date: 20230828
  Receipt Date: 20241018
  Transmission Date: 20250115
  Serious: Yes (Other)
  Sender: INTERCEPT PHARMACEUTICALS
  Company Number: CA-INTERCEPT-PM2022000676

PATIENT
  Age: 66 Year
  Sex: Female

DRUGS (2)
  1. OCALIVA [Suspect]
     Active Substance: OBETICHOLIC ACID
     Indication: Primary biliary cholangitis
     Dosage: 5 MG, QD (IN THE EVENING)
     Route: 048
     Dates: start: 20180730
  2. URSODIOL [Concomitant]
     Active Substance: URSODIOL
     Dosage: 1000 MG, QD (HAD INADEQUATE RESPONSE AS MONOTHERAPY)
     Dates: start: 2013

REACTIONS (3)
  - Amyotrophic lateral sclerosis [Recovering/Resolving]
  - Aspartate aminotransferase abnormal [Unknown]
  - Blood alkaline phosphatase abnormal [Unknown]

NARRATIVE: CASE EVENT DATE: 20211101
